FAERS Safety Report 6268276-6 (Version None)
Quarter: 2009Q3

REPORT INFORMATION
  Report Type: 
  Country: None (occurrence: None)
  Receive Date: 20090714
  Receipt Date: 20090714
  Transmission Date: 20100115
  Serious: No
  Sender: FDA-Public Use
  Company Number: None

PATIENT
  Age: 53 Year
  Sex: Female
  Weight: 63.9572 kg

DRUGS (5)
  1. ZICAM COLD REMEDY NASAL GEL [Suspect]
     Indication: NASAL CONGESTION
     Dosage: FOR TWO DAYS ONCE EVERY FOUR HO NASAL
     Route: 045
     Dates: start: 20090225, end: 20090227
  2. ZICAM COLD REMEDY NASAL GEL [Suspect]
     Indication: NASOPHARYNGITIS
     Dosage: FOR TWO DAYS ONCE EVERY FOUR HO NASAL
     Route: 045
     Dates: start: 20090225, end: 20090227
  3. ZICAM COLD REMEDY NASAL GEL [Suspect]
     Indication: NASAL CONGESTION
     Dosage: FOR TWO DAYS ONCE EVERY FOUR HO NASAL
     Route: 045
     Dates: start: 20090228, end: 20090228
  4. ZICAM COLD REMEDY NASAL GEL [Suspect]
     Indication: NASOPHARYNGITIS
     Dosage: FOR TWO DAYS ONCE EVERY FOUR HO NASAL
     Route: 045
     Dates: start: 20090228, end: 20090228
  5. ALLEGRA D 24 HOUR [Concomitant]

REACTIONS (2)
  - AGEUSIA [None]
  - ANOSMIA [None]
